APPROVED DRUG PRODUCT: DEXTROAMP SACCHARATE, AMP ASPARTATE, DEXTROAMP SULFATE AND AMP SULFATE
Active Ingredient: AMPHETAMINE ASPARTATE; AMPHETAMINE SULFATE; DEXTROAMPHETAMINE SACCHARATE; DEXTROAMPHETAMINE SULFATE
Strength: 5MG;5MG;5MG;5MG
Dosage Form/Route: CAPSULE, EXTENDED RELEASE;ORAL
Application: A211715 | Product #004
Applicant: SUN PHARMACEUTICAL INDUSTRIES INC
Approved: May 17, 2019 | RLD: No | RS: No | Type: DISCN